FAERS Safety Report 21417638 (Version 1)
Quarter: 2022Q4

REPORT INFORMATION
  Report Type: Report from Study
  Country: US (occurrence: US)
  Receive Date: 20221006
  Receipt Date: 20221006
  Transmission Date: 20230112
  Serious: Yes (Hospitalization, Other)
  Sender: FDA-Public Use
  Company Number: US-BRISTOL-MYERS SQUIBB COMPANY-2022-113231

PATIENT
  Age: 64 Year
  Sex: Male
  Weight: 72.8 kg

DRUGS (13)
  1. REVLIMID [Suspect]
     Active Substance: LENALIDOMIDE
     Indication: Product used for unknown indication
     Dosage: 14 DAYS ON,7 DAYS OFF
     Route: 048
     Dates: start: 20151201, end: 20160311
  2. REVLIMID [Suspect]
     Active Substance: LENALIDOMIDE
     Dosage: 28 DAYS CONTINUOUS
     Route: 048
     Dates: start: 20160817, end: 20161117
  3. REVLIMID [Suspect]
     Active Substance: LENALIDOMIDE
     Dosage: 21 DAY ON, 7 DAY OFF
     Route: 048
     Dates: start: 20161118, end: 20170216
  4. REVLIMID [Suspect]
     Active Substance: LENALIDOMIDE
     Dosage: 21 DAY ON, 7 DAYS OFF
     Route: 048
     Dates: start: 20170217, end: 20170516
  5. REVLIMID [Suspect]
     Active Substance: LENALIDOMIDE
     Dosage: 21 DAYS ON, 7 DAYS OFF
     Route: 048
     Dates: start: 20170517
  6. DECADRON [Suspect]
     Active Substance: DEXAMETHASONE
     Indication: Product used for unknown indication
     Dosage: DAILY , DAYS 1-14
     Route: 048
     Dates: start: 20151201, end: 20160311
  7. DECADRON [Suspect]
     Active Substance: DEXAMETHASONE
     Route: 042
     Dates: start: 20160413, end: 20160413
  8. VELCADE [Suspect]
     Active Substance: BORTEZOMIB
     Indication: Plasma cell myeloma
     Dosage: 1X WEEKLY FOR 3 WEEKS, 1 WEEK OFF
     Route: 058
     Dates: start: 20210406
  9. VELCADE [Suspect]
     Active Substance: BORTEZOMIB
     Dosage: 2* WEEKLY, DAYS AND 1 AND 4 Q 7 DAYS, 1 WEEK OFF Q 14 DAYS
     Route: 058
     Dates: start: 20151201, end: 20160311
  10. CYTOXAN [Suspect]
     Active Substance: CYCLOPHOSPHAMIDE
     Indication: Product used for unknown indication
     Dosage: ONCE @ 125ML/HR OVER 4 HOURS
     Route: 042
     Dates: start: 20160413, end: 20160413
  11. NINLARO [Suspect]
     Active Substance: IXAZOMIB CITRATE
     Indication: Plasma cell myeloma
     Dosage: DAYS 1,8 AND 15 Q 28D
     Route: 048
     Dates: start: 20210406, end: 20220208
  12. NINLARO [Suspect]
     Active Substance: IXAZOMIB CITRATE
     Dosage: DAYS 1,8 AND 15 Q 28 D
     Route: 048
     Dates: start: 20220208
  13. DARZALEX FASPRO [Suspect]
     Active Substance: DARATUMUMAB\HYALURONIDASE-FIHJ
     Indication: Plasma cell myeloma
     Dosage: WEEKLY SC FASPRO INJ
     Route: 058
     Dates: start: 20220406

REACTIONS (7)
  - Mental status changes [Recovered/Resolved]
  - Confusional state [Unknown]
  - Ataxia [Unknown]
  - Cardiomyopathy [Unknown]
  - Toxicity to various agents [Unknown]
  - Transient ischaemic attack [Unknown]
  - Off label use [Unknown]

NARRATIVE: CASE EVENT DATE: 20220902
